FAERS Safety Report 20945746 (Version 1)
Quarter: 2022Q2

REPORT INFORMATION
  Report Type: Spontaneous
  Country: US (occurrence: None)
  Receive Date: 20220609
  Receipt Date: 20220609
  Transmission Date: 20220721
  Serious: Yes (Hospitalization)
  Sender: FDA-Public Use
  Company Number: None

PATIENT
  Age: 75 Year
  Sex: Male
  Weight: 94.89 kg

DRUGS (12)
  1. INLYTA [Suspect]
     Active Substance: AXITINIB
  2. FINASTERIDE [Concomitant]
     Active Substance: FINASTERIDE
  3. TRADJENTA [Concomitant]
     Active Substance: LINAGLIPTIN
  4. FUROSEMIDE [Concomitant]
     Active Substance: FUROSEMIDE
  5. TERAZOSIN [Concomitant]
     Active Substance: TERAZOSIN HYDROCHLORIDE
  6. LOSARTAN POTASSIUM [Concomitant]
     Active Substance: LOSARTAN POTASSIUM
  7. HYDROCHLOROTHIAZIDE [Concomitant]
     Active Substance: HYDROCHLOROTHIAZIDE
  8. METOPROLOL TARTRATE [Concomitant]
     Active Substance: METOPROLOL TARTRATE
  9. ATORVASTATIN CALCIUM [Concomitant]
     Active Substance: ATORVASTATIN CALCIUM
  10. HUMALOG [Concomitant]
     Active Substance: INSULIN LISPRO
  11. LANTUS [Concomitant]
     Active Substance: INSULIN GLARGINE
  12. ASPIRIN [Concomitant]
     Active Substance: ASPIRIN

REACTIONS (4)
  - Mental disorder [None]
  - Hypothyroidism [None]
  - Cerebral infarction [None]
  - Nephrolithiasis [None]
